FAERS Safety Report 8851950 (Version 1)
Quarter: 2012Q4

REPORT INFORMATION
  Report Type: 
  Country: US (occurrence: US)
  Receive Date: 20121022
  Receipt Date: 20121022
  Transmission Date: 20130627
  Serious: Yes (Other)
  Sender: FDA-Public Use
  Company Number: US-ELI_LILLY_AND_COMPANY-US201210003433

PATIENT
  Sex: Female

DRUGS (3)
  1. STRATTERA [Suspect]
     Indication: DISTURBANCE IN ATTENTION
     Dosage: UNK
     Dates: start: 2004
  2. ANTIDEPRESSANTS [Concomitant]
  3. THYROID THERAPY [Concomitant]

REACTIONS (9)
  - Hysterectomy [Unknown]
  - Bladder malposition acquired [Unknown]
  - Urine flow decreased [Unknown]
  - Urinary incontinence [Unknown]
  - Thyroid disorder [Unknown]
  - Menopause [Not Recovered/Not Resolved]
  - Urinary straining [Unknown]
  - Abdominal pain upper [Unknown]
  - Urinary retention [Unknown]
